FAERS Safety Report 7759504-6 (Version None)
Quarter: 2011Q3

REPORT INFORMATION
  Report Type: 
  Country: None (occurrence: None)
  Receive Date: 20110919
  Receipt Date: 20110919
  Transmission Date: 20111222
  Serious: Yes (Hospitalization, Other)
  Sender: FDA-Public Use
  Company Number: None

PATIENT
  Age: 31 Year
  Sex: Female
  Weight: 66.678 kg

DRUGS (2)
  1. MISOPROSTOL [Concomitant]
     Dosage: MISOPROSTOL 10 PILLS
     Route: 067
  2. MIFEPREX [Suspect]
     Indication: ABORTION
     Dosage: MIFEPREX SMALL PIECE ONE BY
     Route: 048
     Dates: start: 20110722, end: 20110725

REACTIONS (20)
  - HYPOAESTHESIA [None]
  - RASH [None]
  - ANGINA PECTORIS [None]
  - DRUG INEFFECTIVE [None]
  - DIZZINESS [None]
  - HYPERVENTILATION [None]
  - HEART RATE INCREASED [None]
  - VAGINAL HAEMORRHAGE [None]
  - DYSPNOEA [None]
  - SOMNOLENCE [None]
  - DIARRHOEA [None]
  - PANIC ATTACK [None]
  - MIGRAINE [None]
  - ASTHENIA [None]
  - PRESYNCOPE [None]
  - ANXIETY [None]
  - THROMBOSIS [None]
  - CHEST PAIN [None]
  - HEADACHE [None]
  - MUSCLE SPASMS [None]
